FAERS Safety Report 9871439 (Version 1)
Quarter: 2014Q1

REPORT INFORMATION
  Report Type: Spontaneous
  Country: US (occurrence: None)
  Receive Date: 20140204
  Receipt Date: 20140204
  Transmission Date: 20141002
  Serious: No
  Sender: FDA-Public Use
  Company Number: None

PATIENT
  Age: 76 Year
  Sex: Male
  Weight: 83.92 kg

DRUGS (6)
  1. ELIGARD [Suspect]
     Indication: PROSTATE CANCER
     Dosage: ONE INYECTION EACH 3 MONTHS SUBCUTANEOUS
     Route: 058
     Dates: start: 20130809
  2. NORVASC [Concomitant]
  3. ALDACTONE [Concomitant]
  4. PROZAC [Concomitant]
  5. FISH OIL [Concomitant]
  6. MULTIVITAMIN [Concomitant]

REACTIONS (1)
  - Subcutaneous abscess [None]
